FAERS Safety Report 22140459 (Version 4)
Quarter: 2023Q2

REPORT INFORMATION
  Report Type: Spontaneous
  Country: US (occurrence: US)
  Receive Date: 20230327
  Receipt Date: 20230609
  Transmission Date: 20230722
  Serious: No
  Sender: FDA-Public Use
  Company Number: US-BIOGEN-2023BI01195644

PATIENT
  Sex: Female

DRUGS (18)
  1. TECFIDERA [Suspect]
     Active Substance: DIMETHYL FUMARATE
     Indication: Multiple sclerosis
     Route: 050
  2. ALPRAZOLAM [Concomitant]
     Active Substance: ALPRAZOLAM
     Route: 050
  3. DRISDOL [Concomitant]
     Active Substance: ERGOCALCIFEROL
     Route: 050
  4. DULOXETINE HYDROCHLORIDE [Concomitant]
     Active Substance: DULOXETINE HYDROCHLORIDE
     Route: 050
  5. FLORAJEN3 [Concomitant]
     Route: 050
  6. GAS-X [Concomitant]
     Active Substance: DIMETHICONE
     Route: 050
  7. LISINOPRIL [Concomitant]
     Active Substance: LISINOPRIL
     Route: 050
  8. METFORMIN HYDROCHLORIDE [Concomitant]
     Active Substance: METFORMIN HYDROCHLORIDE
     Route: 050
  9. POTASSIUM [Concomitant]
     Active Substance: POTASSIUM
     Route: 050
  10. IBUPROFEN [Concomitant]
     Active Substance: IBUPROFEN
     Route: 050
  11. MAGNESIUM [Concomitant]
     Active Substance: MAGNESIUM
     Route: 050
  12. OMEPRAZOLE [Concomitant]
     Active Substance: OMEPRAZOLE
     Route: 050
  13. ATORVASTATIN CALCIUM [Concomitant]
     Active Substance: ATORVASTATIN CALCIUM
     Route: 050
  14. CEPHALEXIN [Concomitant]
     Active Substance: CEPHALEXIN
     Route: 050
  15. B6 NATURAL [Concomitant]
     Route: 050
  16. ALLOPURINOL [Concomitant]
     Active Substance: ALLOPURINOL
     Route: 050
  17. VARENICLINE TARTRATE [Concomitant]
     Active Substance: VARENICLINE TARTRATE
     Route: 050
  18. VITAMIN D 400 [Concomitant]
     Route: 050

REACTIONS (4)
  - Flatulence [Not Recovered/Not Resolved]
  - Abdominal discomfort [Unknown]
  - COVID-19 [Unknown]
  - Flushing [Unknown]
